FAERS Safety Report 20744854 (Version 1)
Quarter: 2022Q2

REPORT INFORMATION
  Report Type: Spontaneous
  Country: ES (occurrence: ES)
  Receive Date: 20220425
  Receipt Date: 20220425
  Transmission Date: 20220720
  Serious: Yes (Hospitalization, Other)
  Sender: FDA-Public Use
  Company Number: ES-ADVANZ PHARMA-202202001092

PATIENT

DRUGS (13)
  1. LEVETIRACETAM [Suspect]
     Active Substance: LEVETIRACETAM
     Dosage: 500/500
     Dates: start: 2016
  2. LEVETIRACETAM [Suspect]
     Active Substance: LEVETIRACETAM
     Dosage: DECREASED TO 500/500 MG
  3. LEVETIRACETAM [Suspect]
     Active Substance: LEVETIRACETAM
     Dosage: DOSE INCREASED TO 500/1000 MG
  4. LEVETIRACETAM [Suspect]
     Active Substance: LEVETIRACETAM
     Dosage: 500/500
  5. LEVETIRACETAM [Suspect]
     Active Substance: LEVETIRACETAM
     Dosage: DECREASED TO 250/250
     Dates: start: 2019, end: 2019
  6. ESLICARBAZEPINE ACETATE [Suspect]
     Active Substance: ESLICARBAZEPINE ACETATE
     Indication: Partial seizures
     Dosage: RAISED TO 400/800 MG
     Dates: start: 2017
  7. ESLICARBAZEPINE ACETATE [Suspect]
     Active Substance: ESLICARBAZEPINE ACETATE
     Dosage: 800 MG
  8. ESLICARBAZEPINE ACETATE [Suspect]
     Active Substance: ESLICARBAZEPINE ACETATE
     Dosage: 800 MG (CHANGED BACK)
     Dates: start: 2018
  9. PERAMPANEL [Suspect]
     Active Substance: PERAMPANEL
     Indication: Partial seizures
     Dosage: 2 MG, QD (AT BED TIME)
     Dates: start: 2019
  10. PERAMPANEL [Suspect]
     Active Substance: PERAMPANEL
     Dosage: 4 MG, QD (AT BEDTIME)
     Dates: start: 2019
  11. PERAMPANEL [Suspect]
     Active Substance: PERAMPANEL
     Dosage: 6 MG, INCREASED
     Dates: start: 2019
  12. PERAMPANEL [Suspect]
     Active Substance: PERAMPANEL
     Dosage: 8 MG
     Dates: start: 2021
  13. ZONEGRAN [Suspect]
     Active Substance: ZONISAMIDE
     Indication: Partial seizures
     Dosage: SLOW SCHEDULE UP TO 50-100 MGS, ZONEGRAN
     Dates: start: 2016, end: 2019

REACTIONS (14)
  - Daydreaming [Unknown]
  - Drug intolerance [Unknown]
  - Anxiety [Unknown]
  - Drug ineffective [Unknown]
  - Nausea [Unknown]
  - Partial seizures [Unknown]
  - Dizziness [Unknown]
  - Decreased appetite [Unknown]
  - Unresponsive to stimuli [Unknown]
  - Somnolence [Unknown]
  - Intentional self-injury [Unknown]
  - Condition aggravated [Unknown]
  - Visual acuity reduced [Unknown]
  - Impulse-control disorder [Unknown]

NARRATIVE: CASE EVENT DATE: 20160101
